FAERS Safety Report 9450364 (Version 2)
Quarter: 2013Q3

REPORT INFORMATION
  Report Type: Spontaneous
  Country: GB (occurrence: None)
  Receive Date: 20130807
  Receipt Date: 20130809
  Transmission Date: 20140515
  Serious: Yes (Congenital Anomaly, Other)
  Sender: FDA-Public Use
  Company Number: AUR-APL-2013-06362

PATIENT
  Age: 0 Day
  Sex: Male

DRUGS (1)
  1. PAROXETINE (PAROXETINE) [Suspect]
     Indication: ANXIETY
     Route: 064
     Dates: start: 20110106, end: 20110309

REACTIONS (2)
  - Foetal exposure during pregnancy [None]
  - Fallot^s tetralogy [None]
